FAERS Safety Report 9222804 (Version 1)
Quarter: 2013Q1

REPORT INFORMATION
  Report Type: Spontaneous
  Country: US (occurrence: None)
  Receive Date: 20120914
  Receipt Date: 20120914
  Transmission Date: 20140127
  Serious: Yes (Other)
  Sender: FDA-Public Use
  Company Number: JPI-P-019553

PATIENT
  Age: 19 Year
  Sex: Male
  Weight: 79.38 kg

DRUGS (1)
  1. XYREM [Suspect]
     Indication: LYME DISEASE
     Dosage: 2.25 GM 2 IN 1 D
     Route: 048
     Dates: start: 20100712

REACTIONS (8)
  - Sleep apnoea syndrome [None]
  - Nasal septum deviation [None]
  - Dyspnoea [None]
  - Procedural pain [None]
  - Nasopharyngitis [None]
  - Oropharyngeal pain [None]
  - Throat irritation [None]
  - Dysphagia [None]
